FAERS Safety Report 9848471 (Version 1)
Quarter: 2014Q1

REPORT INFORMATION
  Report Type: Spontaneous
  Country: GB (occurrence: GB)
  Receive Date: 20140128
  Receipt Date: 20140128
  Transmission Date: 20141002
  Serious: Yes (Life-Threatening, Hospitalization)
  Sender: FDA-Public Use
  Company Number: GB-ELI_LILLY_AND_COMPANY-GB201401008319

PATIENT
  Age: 56 Year
  Sex: Female

DRUGS (17)
  1. FORSTEO [Suspect]
     Indication: OSTEOPOROSIS POSTMENOPAUSAL
     Dosage: 20 UG, UNK
     Route: 058
     Dates: start: 20140113, end: 20140113
  2. OMEPRAZOLE [Concomitant]
     Dosage: UNK
  3. PRAXILENE [Concomitant]
     Dosage: UNK
  4. FUCIDIN                            /00065701/ [Concomitant]
     Dosage: UNK
  5. FYBOGEL [Concomitant]
     Dosage: UNK
  6. LOPERAMIDE [Concomitant]
     Dosage: UNK
  7. BUTRANS                            /00444001/ [Concomitant]
     Dosage: UNK
  8. CODEINE [Concomitant]
     Dosage: UNK
  9. DULOXETINE [Concomitant]
     Dosage: UNK
  10. MIDODRINE [Concomitant]
     Dosage: UNK
  11. GABAPENTIN [Concomitant]
     Dosage: UNK
  12. ALENDRONIC ACID [Concomitant]
     Dosage: UNK
  13. HYOSCINE [Concomitant]
     Dosage: UNK
  14. COLECALCIFEROL [Concomitant]
     Dosage: UNK
  15. DOMPERIDONE [Concomitant]
     Dosage: UNK
  16. PARACETAMOL [Concomitant]
     Dosage: UNK
  17. FLUDROCORTISONE [Concomitant]
     Dosage: UNK

REACTIONS (5)
  - Anaphylactic reaction [Recovered/Resolved]
  - Chest discomfort [Recovered/Resolved]
  - Tonic clonic movements [Recovered/Resolved]
  - Chest pain [Unknown]
  - Injection site erythema [Unknown]
